FAERS Safety Report 6436311-8 (Version None)
Quarter: 2009Q4

REPORT INFORMATION
  Report Type: 
  Country: None (occurrence: None)
  Receive Date: 20091111
  Receipt Date: 20091106
  Transmission Date: 20100525
  Serious: Yes (Other)
  Sender: FDA-Public Use
  Company Number: B0598752A

PATIENT
  Sex: Male

DRUGS (2)
  1. RELENZA [Suspect]
     Dosage: 10MG TWICE PER DAY
     Route: 055
     Dates: start: 20091015, end: 20091016
  2. CALONAL [Suspect]
     Indication: ANTIPYRESIS
     Dosage: 400MG TWICE PER DAY
     Route: 048
     Dates: start: 20091015, end: 20091016

REACTIONS (1)
  - LOSS OF CONSCIOUSNESS [None]
